FAERS Safety Report 8362044-7 (Version None)
Quarter: 2012Q2

REPORT INFORMATION
  Report Type: 
  Country: None (occurrence: None)
  Receive Date: 20120515
  Receipt Date: 20120430
  Transmission Date: 20120825
  Serious: Yes (Hospitalization)
  Sender: FDA-Public Use
  Company Number: KP-SPECTRUM PHARMACEUTICALS, INC.-12-F-KP-00075

PATIENT
  Age: 60 Year
  Sex: Male

DRUGS (3)
  1. FLUOROURACIL [Suspect]
     Indication: COLON CANCER STAGE II
     Dosage: 425 MG/M2,  DAYS ONE TO FIVE, EVERY FOUR WEEKS (TOTAL OF SIX CYCLES)
     Route: 065
  2. DOXIFLURIDINE [Suspect]
     Indication: COLON CANCER STAGE II
     Dosage: 100 MG, QD
     Route: 065
  3. LEUCOVORIN CALCIUM [Suspect]
     Indication: COLON CANCER STAGE II
     Dosage: 20 MG/M2, DAYS ONE TO FIVE, EVERY FOUR WEEKS (TOTAL OF SIX CYCLES)
     Route: 065

REACTIONS (6)
  - THROMBOCYTOPENIA [None]
  - ASTHENIA [None]
  - FATIGUE [None]
  - ANAEMIA [None]
  - ACUTE MYELOID LEUKAEMIA [None]
  - DYSPNOEA EXERTIONAL [None]
